FAERS Safety Report 14652112 (Version 1)
Quarter: 2018Q1

REPORT INFORMATION
  Report Type: Spontaneous
  Country: US (occurrence: US)
  Receive Date: 20180318
  Receipt Date: 20180318
  Transmission Date: 20180509
  Serious: No
  Sender: FDA-Public Use
  Company Number: US-JNJFOC-20180301656

PATIENT
  Age: 44 Year
  Sex: Female
  Weight: 79.38 kg

DRUGS (2)
  1. WOMENS ROGAINE UNSCENTED [Suspect]
     Active Substance: MINOXIDIL
     Indication: ALOPECIA
     Dosage: 2 CAPFUL WHEN CAME OUT AS FOAM AND UNSPECIFIED AMOUNT WHEN IT??STARTED COMING OUT AS A LIQUID
     Route: 061
  2. WOMENS ROGAINE UNSCENTED [Suspect]
     Active Substance: MINOXIDIL
     Indication: ALOPECIA
     Dosage: 2 CAPFUL WHEN CAME OUT AS FOAM AND UNSPECIFIED AMOUNT WHEN IT??STARTED COMING OUT AS A LIQUID
     Route: 061

REACTIONS (5)
  - Product formulation issue [Unknown]
  - Overdose [Unknown]
  - Product use in unapproved indication [Unknown]
  - Product quality issue [Unknown]
  - Incorrect dose administered [Unknown]
